FAERS Safety Report 16120348 (Version 1)
Quarter: 2019Q1

REPORT INFORMATION
  Report Type: Spontaneous
  Country: DK (occurrence: DK)
  Receive Date: 20190326
  Receipt Date: 20190326
  Transmission Date: 20190418
  Serious: Yes (Hospitalization)
  Sender: FDA-Public Use
  Company Number: PHHY2019DK063173

PATIENT
  Age: 71 Year
  Sex: Female

DRUGS (5)
  1. PALBOCICLIB [Concomitant]
     Active Substance: PALBOCICLIB
     Indication: BREAST CANCER
     Dosage: 75 MG, QD
     Route: 048
     Dates: start: 20171206
  2. CALCIUM + VITAMIN D [Concomitant]
     Active Substance: CALCIUM\VITAMIN D
     Indication: VITAMIN SUPPLEMENTATION
     Dosage: 400 MG CALCIUM + 19 ?G D-VITAMIN
     Route: 048
  3. PARACETAMOL [Concomitant]
     Active Substance: ACETAMINOPHEN
     Indication: PAIN
     Dosage: 1000 MG, UNK (500 MG,  TABLETTER EFTER BEHOV, H?JST 4 GANGE DAGLIG)
     Route: 048
  4. ZOLEDRONIC ACID [Suspect]
     Active Substance: ZOLEDRONIC ACID
     Indication: BREAST CANCER METASTATIC
     Dosage: 4 MG, Q4W (4 MG/ 100 ML)
     Route: 042
     Dates: start: 20171206, end: 20181029
  5. LETROZOLE. [Concomitant]
     Active Substance: LETROZOLE
     Indication: BREAST CANCER
     Dosage: 2.5 MG, QD
     Route: 048
     Dates: start: 20171102

REACTIONS (6)
  - Osteonecrosis of jaw [Not Recovered/Not Resolved]
  - Mucosal hypertrophy [Unknown]
  - Gingival erythema [Unknown]
  - Peri-implantitis [Unknown]
  - Pain in jaw [Unknown]
  - Gingival swelling [Unknown]

NARRATIVE: CASE EVENT DATE: 201810
